FAERS Safety Report 4913334-9 (Version None)
Quarter: 2006Q1

REPORT INFORMATION
  Report Type: 
  Country: None (occurrence: None)
  Receive Date: 20060215
  Receipt Date: 20050315
  Transmission Date: 20060701
  Serious: Yes (Hospitalization, Other)
  Sender: FDA-Public Use
  Company Number: US-MERCK-0503USA03144

PATIENT
  Age: 55 Year
  Sex: Male
  Weight: 79 kg

DRUGS (7)
  1. VIOXX [Suspect]
     Indication: PAIN
     Route: 048
     Dates: start: 20010810, end: 20040530
  2. ACCOLATE [Concomitant]
     Route: 048
  3. ANTIVERT [Concomitant]
     Route: 065
  4. ANTIVERT [Concomitant]
     Route: 065
  5. ADVAIR DISKUS 100/50 [Concomitant]
     Route: 055
  6. ADVAIR DISKUS 100/50 [Concomitant]
     Route: 048
  7. MICROZIDE [Concomitant]
     Route: 048

REACTIONS (9)
  - CARDIAC FAILURE [None]
  - CARDIOVASCULAR DISORDER [None]
  - CEREBROVASCULAR ACCIDENT [None]
  - GASTROOESOPHAGEAL REFLUX DISEASE [None]
  - HEPATOCELLULAR DAMAGE [None]
  - MYOCARDIAL INFARCTION [None]
  - RENAL DISORDER [None]
  - THROMBOSIS [None]
  - ULCER [None]
